FAERS Safety Report 25079058 (Version 2)
Quarter: 2025Q1

REPORT INFORMATION
  Report Type: Spontaneous
  Country: US (occurrence: US)
  Receive Date: 20250314
  Receipt Date: 20250319
  Transmission Date: 20250408
  Serious: Yes (Other)
  Sender: Day One Biopharmaceuticals
  Company Number: US-Day One Biopharmaceuticals Inc.-2025US000372

PATIENT

DRUGS (1)
  1. OJEMDA [Suspect]
     Active Substance: TOVORAFENIB
     Indication: Metastatic malignant melanoma
     Route: 065

REACTIONS (3)
  - Pericardial effusion [Unknown]
  - Blood creatine phosphokinase increased [Unknown]
  - Off label use [Unknown]
